FAERS Safety Report 24034348 (Version 1)
Quarter: 2024Q3

REPORT INFORMATION
  Report Type: Spontaneous
  Country: US (occurrence: US)
  Receive Date: 20240701
  Receipt Date: 20240701
  Transmission Date: 20241017
  Serious: Yes (Life-Threatening, Hospitalization)
  Sender: ACCORD
  Company Number: US-MLMSERVICE-20240613-PI099086-00218-1

PATIENT
  Age: 43 Year
  Sex: Male

DRUGS (1)
  1. METHOTREXATE [Suspect]
     Active Substance: METHOTREXATE
     Indication: Psoriasis
     Dosage: 10 MG OF METHOTREXATE TWICE WEEKLY BY A PHYSICIAN

REACTIONS (9)
  - Inappropriate schedule of product administration [Unknown]
  - Enterococcal infection [Unknown]
  - Opportunistic infection [Unknown]
  - Septic shock [Unknown]
  - Acute kidney injury [Unknown]
  - Respiratory failure [Unknown]
  - Accidental overdose [Unknown]
  - Renal failure [Unknown]
  - Staphylococcal infection [Unknown]
